FAERS Safety Report 19740880 (Version 1)
Quarter: 2021Q3

REPORT INFORMATION
  Report Type: Spontaneous
  Country: FR (occurrence: FR)
  Receive Date: 20210825
  Receipt Date: 20210825
  Transmission Date: 20211014
  Serious: Yes (Life-Threatening, Other)
  Sender: FDA-Public Use
  Company Number: FR-AUROBINDO-AUR-APL-2021-035579

PATIENT
  Age: 60 Year
  Sex: Female
  Weight: 71 kg

DRUGS (7)
  1. BROMAZEPAM [Suspect]
     Active Substance: BROMAZEPAM
     Indication: POISONING DELIBERATE
     Dosage: 900 MILLIGRAM
     Route: 048
     Dates: start: 20210703, end: 20210703
  2. ESCITALOPRAM [Suspect]
     Active Substance: ESCITALOPRAM OXALATE
     Indication: POISONING DELIBERATE
     Dosage: 80 MILLIGRAM
     Route: 048
     Dates: start: 20210703, end: 20210703
  3. ALPRAZOLAM. [Suspect]
     Active Substance: ALPRAZOLAM
     Indication: POISONING DELIBERATE
     Dosage: 7 GRAM
     Route: 048
     Dates: start: 20210703, end: 20210703
  4. CARDIOCALM [HYOSCYAMUS NIGER DRY EXTRACT;PHENOBARBITAL;QUININE HYDROBROMIDE;VALERIANA OFFICINALIS EXTRACT] [Suspect]
     Active Substance: HYOSCYAMUS NIGER\PHENOBARBITAL\QUININE HYDROBROMIDE\VALERIAN
     Indication: POISONING DELIBERATE
     Dosage: 400 MILLIGRAM
     Route: 048
     Dates: start: 20210703, end: 20210703
  5. LAMICTAL [Suspect]
     Active Substance: LAMOTRIGINE
     Indication: POISONING DELIBERATE
     Dosage: 9 GRAM
     Route: 048
     Dates: start: 20210703, end: 20210703
  6. ZOLPIDEM [Suspect]
     Active Substance: ZOLPIDEM TARTRATE
     Indication: POISONING DELIBERATE
     Dosage: 140 MILLIGRAM
     Route: 048
     Dates: start: 20210703, end: 20210703
  7. DAFALGAN CODEINE [Suspect]
     Active Substance: ACETAMINOPHEN\CODEINE PHOSPHATE
     Indication: POISONING DELIBERATE
     Dosage: 14 GRAM
     Route: 048
     Dates: start: 20210703, end: 20210703

REACTIONS (1)
  - Coma [Recovered/Resolved]

NARRATIVE: CASE EVENT DATE: 20210703
